FAERS Safety Report 17727867 (Version 6)
Quarter: 2021Q3

REPORT INFORMATION
  Report Type: Spontaneous
  Country: US (occurrence: US)
  Receive Date: 20200430
  Receipt Date: 20210811
  Transmission Date: 20211014
  Serious: Yes (Other)
  Sender: FDA-Public Use
  Company Number: US-PFIZER INC-2020150186

PATIENT
  Age: 56 Year
  Sex: Female
  Weight: 55.34 kg

DRUGS (4)
  1. XELJANZ [Suspect]
     Active Substance: TOFACITINIB CITRATE
     Indication: RAYNAUD^S PHENOMENON
     Dosage: 5 MG, 1X/DAY
     Route: 048
     Dates: start: 20200819
  2. XELJANZ [Suspect]
     Active Substance: TOFACITINIB CITRATE
     Indication: POLYCHONDRITIS
     Dosage: 5 MG
  3. HYDROCORTISONE. [Concomitant]
     Active Substance: HYDROCORTISONE
     Indication: ADRENAL INSUFFICIENCY
     Dosage: 10MG TABLET DAILY.
     Dates: start: 20210415
  4. REMICADE [Suspect]
     Active Substance: INFLIXIMAB
     Indication: POLYCHONDRITIS

REACTIONS (8)
  - Monoplegia [Unknown]
  - Underdose [Unknown]
  - Hypoaesthesia [Unknown]
  - Coordination abnormal [Unknown]
  - Movement disorder [Unknown]
  - Drug ineffective for unapproved indication [Unknown]
  - Liver disorder [Recovering/Resolving]
  - Illness [Unknown]

NARRATIVE: CASE EVENT DATE: 20210127
